FAERS Safety Report 13382857 (Version 1)
Quarter: 2017Q1

REPORT INFORMATION
  Report Type: Report from Study
  Country: US (occurrence: US)
  Receive Date: 20170329
  Receipt Date: 20170329
  Transmission Date: 20170429
  Serious: Yes (Death, Hospitalization)
  Sender: FDA-Public Use
  Company Number: US-ASTRAZENECA-2016SE94027

PATIENT
  Age: 27047 Day
  Sex: Female

DRUGS (1)
  1. TAGRISSO [Suspect]
     Active Substance: OSIMERTINIB
     Indication: NON-SMALL CELL LUNG CANCER
     Route: 048

REACTIONS (4)
  - Death [Fatal]
  - Thrombocytopenia [Unknown]
  - Haemoglobin decreased [Unknown]
  - Onychoclasis [Unknown]

NARRATIVE: CASE EVENT DATE: 20170314
